FAERS Safety Report 23452996 (Version 1)
Quarter: 2024Q1

REPORT INFORMATION
  Report Type: Spontaneous
  Country: None (occurrence: AU)
  Receive Date: 20240129
  Receipt Date: 20240129
  Transmission Date: 20240409
  Serious: Yes (Other)
  Sender: FDA-Public Use
  Company Number: AU-Ascend Therapeutics US, LLC-2152230

PATIENT
  Sex: Female

DRUGS (5)
  1. ESTROGEL [Suspect]
     Active Substance: ESTRADIOL
     Indication: Hormone therapy
     Route: 062
  2. ESTRADIOL [Suspect]
     Active Substance: ESTRADIOL
     Route: 062
  3. PROMETRIUM [Suspect]
     Active Substance: PROGESTERONE
     Route: 048
  4. estradot ESTRADIOL [Concomitant]
     Route: 065
  5. PROVERA [Concomitant]
     Active Substance: MEDROXYPROGESTERONE ACETATE
     Route: 065

REACTIONS (1)
  - Depression [Unknown]
